FAERS Safety Report 4991885-9 (Version None)
Quarter: 2006Q2

REPORT INFORMATION
  Report Type: 
  Country: None (occurrence: None)
  Receive Date: 20060504
  Receipt Date: 20060106
  Transmission Date: 20061013
  Serious: Yes (Hospitalization)
  Sender: FDA-Public Use
  Company Number: US-MERCK-0601USA00833

PATIENT
  Age: 63 Year
  Sex: Male
  Weight: 70 kg

DRUGS (12)
  1. CLOBETASOL PROPIONATE [Concomitant]
     Route: 065
  2. VIOXX [Suspect]
     Indication: PAIN
     Route: 048
     Dates: start: 20030901, end: 20040301
  3. IBUPROFEN [Concomitant]
     Route: 065
  4. ASCORBIC ACID [Concomitant]
     Route: 065
  5. VITAMIN E [Concomitant]
     Route: 065
  6. FOLIC ACID [Concomitant]
     Route: 065
  7. GLUCOSAMINE [Concomitant]
     Route: 065
  8. DIGOXIN [Concomitant]
     Route: 065
  9. PLAVIX [Concomitant]
     Route: 065
  10. LIPITOR [Concomitant]
     Route: 065
  11. TOPROL-XL [Concomitant]
     Route: 065
  12. DIOVAN [Concomitant]
     Route: 065

REACTIONS (1)
  - MYOCARDIAL INFARCTION [None]
